FAERS Safety Report 4289296-7 (Version None)
Quarter: 2004Q1

REPORT INFORMATION
  Report Type: 
  Country: None (occurrence: None)
  Receive Date: 20040209
  Receipt Date: 20040209
  Transmission Date: 20041129
  Serious: Yes (Disabling)
  Sender: FDA-Public Use
  Company Number: None

PATIENT
  Age: 49 Year
  Sex: Female
  Weight: 48.9885 kg

DRUGS (1)
  1. KLONOPIN [Suspect]
     Indication: POST VIRAL FATIGUE SYNDROME
     Dosage: .25 MG TO 0.5 MG EVENING ORAL
     Route: 048
     Dates: start: 20030120, end: 20040329

REACTIONS (1)
  - DRUG WITHDRAWAL SYNDROME [None]
